FAERS Safety Report 13534370 (Version 17)
Quarter: 2018Q4

REPORT INFORMATION
  Report Type: Spontaneous
  Country: DE (occurrence: DE)
  Receive Date: 20170510
  Receipt Date: 20181009
  Transmission Date: 20190204
  Serious: Yes (Other)
  Sender: FDA-Public Use
  Company Number: DE-009507513-1609DEU006383

PATIENT
  Age: 31 Year
  Sex: Female
  Weight: 67 kg

DRUGS (2)
  1. NUVARING [Suspect]
     Active Substance: ETHINYL ESTRADIOL\ETONOGESTREL
     Dosage: UNK
     Dates: start: 20180525
  2. NUVARING [Suspect]
     Active Substance: ETHINYL ESTRADIOL\ETONOGESTREL
     Indication: CONTRACEPTION
     Dosage: DAILY DOSE: 1 DF DOSAGE FORM EVERY 3 WEEK
     Route: 067
     Dates: start: 2009

REACTIONS (38)
  - Wound [Unknown]
  - Gastritis [Unknown]
  - Increased tendency to bruise [Unknown]
  - Asthma [Unknown]
  - Myositis [Not Recovered/Not Resolved]
  - Musculoskeletal discomfort [Unknown]
  - Device expulsion [Recovered/Resolved]
  - Urinary tract infection [Unknown]
  - Muscle tightness [Unknown]
  - Bladder irritation [Recovering/Resolving]
  - Abdominal discomfort [Recovering/Resolving]
  - Vaginal haemorrhage [Recovered/Resolved]
  - Abdominal pain upper [Unknown]
  - Cystitis [Unknown]
  - Inappropriate schedule of product administration [Unknown]
  - Limb discomfort [Unknown]
  - Vaginal discharge [Unknown]
  - Gastrointestinal disorder [Unknown]
  - Product storage error [Unknown]
  - Spider vein [Unknown]
  - Connective tissue disorder [Unknown]
  - Abnormal withdrawal bleeding [Recovered/Resolved]
  - Product colour issue [Unknown]
  - Neck pain [Unknown]
  - Myalgia [Unknown]
  - Bladder disorder [Unknown]
  - Inflammation [Unknown]
  - Product storage error [Unknown]
  - Epigastric discomfort [Unknown]
  - Abdominal discomfort [Unknown]
  - Nasopharyngitis [Unknown]
  - Dry eye [Unknown]
  - Dyspepsia [Unknown]
  - Adverse event [Unknown]
  - Vulvovaginal mycotic infection [Unknown]
  - Product use issue [Unknown]
  - Folate deficiency [Unknown]
  - Muscle tightness [Unknown]

NARRATIVE: CASE EVENT DATE: 2009
